FAERS Safety Report 10034015 (Version 1)
Quarter: 2014Q1

REPORT INFORMATION
  Report Type: Spontaneous
  Country: US (occurrence: US)
  Receive Date: 20140325
  Receipt Date: 20140325
  Transmission Date: 20141002
  Serious: No
  Sender: FDA-Public Use
  Company Number: US-SHIRE-SPV1-2009-00381

PATIENT
  Sex: 0

DRUGS (1)
  1. FOSRENOL [Suspect]
     Indication: HYPERPHOSPHATAEMIA
     Dosage: 1000 MG, WITH EACH MEAL
     Route: 048

REACTIONS (2)
  - Joint crepitation [Unknown]
  - Headache [Unknown]
